FAERS Safety Report 4870122-X (Version None)
Quarter: 2005Q4

REPORT INFORMATION
  Report Type: 
  Country: None (occurrence: None)
  Receive Date: 20051229
  Receipt Date: 20051229
  Transmission Date: 20060501
  Serious: No
  Sender: FDA-Public Use
  Company Number: None

PATIENT
  Sex: Male
  Weight: 81.6475 kg

DRUGS (5)
  1. ALIMTA [Suspect]
     Indication: PERITONEAL MESOTHELIOMA MALIGNANT
     Dosage: 980 MG Q 3 WEEK
     Dates: start: 20051017
  2. ALIMTA [Suspect]
     Indication: PERITONEAL MESOTHELIOMA MALIGNANT
     Dosage: 980 MG Q 3 WEEK
     Dates: start: 20051107
  3. ALIMTA [Suspect]
     Indication: PERITONEAL MESOTHELIOMA MALIGNANT
     Dosage: 980 MG Q 3 WEEK
     Dates: start: 20051128
  4. CISPLATIN [Concomitant]
  5. CARBOPLATIN [Concomitant]

REACTIONS (6)
  - ARTHRALGIA [None]
  - DISEASE PROGRESSION [None]
  - JOINT EFFUSION [None]
  - MUSCULOSKELETAL STIFFNESS [None]
  - NEUROPATHY [None]
  - SWELLING [None]
